FAERS Safety Report 5302619-2 (Version None)
Quarter: 2007Q1

REPORT INFORMATION
  Report Type: 
  Country: None (occurrence: None)
  Receive Date: 20070201
  Receipt Date: 20061215
  Transmission Date: 20070707
  Serious: No
  Sender: FDA-Public Use
  Company Number: 2006PV027055

PATIENT
  Age: 54 Year
  Sex: Male
  Weight: 109.7705 kg

DRUGS (9)
  1. BYETTA [Suspect]
     Indication: DIABETES MELLITUS NON-INSULIN-DEPENDENT
     Dosage: SEE IMAGE
     Route: 058
     Dates: start: 20061001, end: 20061101
  2. BYETTA [Suspect]
     Indication: DIABETES MELLITUS NON-INSULIN-DEPENDENT
     Dosage: SEE IMAGE
     Route: 058
     Dates: start: 20061101
  3. ACTOS [Concomitant]
  4. FORTAMET [Concomitant]
  5. GLIPIZIDE ER [Concomitant]
  6. PRANDIN [Concomitant]
  7. CYCLOBENZAPRINE HCL [Concomitant]
  8. ANTARA [Concomitant]
  9. ZOCOR [Concomitant]

REACTIONS (1)
  - BLOOD GLUCOSE ABNORMAL [None]
